FAERS Safety Report 8021198-2 (Version None)
Quarter: 2012Q1

REPORT INFORMATION
  Report Type: 
  Country: None (occurrence: None)
  Receive Date: 20120104
  Receipt Date: 20111227
  Transmission Date: 20120608
  Serious: Yes (Hospitalization, Other)
  Sender: FDA-Public Use
  Company Number: US-US-EMD SERONO, INC.-7060728

PATIENT
  Sex: Female

DRUGS (5)
  1. VITAMIN D [Concomitant]
  2. REBIF [Suspect]
     Indication: MULTIPLE SCLEROSIS
     Route: 058
     Dates: start: 20110110, end: 20110901
  3. LEVOTHYROXINE SODIUM [Concomitant]
     Indication: HYPOTHYROIDISM
  4. VITAMIN K TAB [Concomitant]
  5. REBIF [Suspect]
     Route: 058
     Dates: start: 20110901

REACTIONS (13)
  - INAPPROPRIATE SCHEDULE OF DRUG ADMINISTRATION [None]
  - CENTRAL NERVOUS SYSTEM LESION [None]
  - TYPE 2 DIABETES MELLITUS [None]
  - THYROID FUNCTION TEST ABNORMAL [None]
  - SCAR [None]
  - BRAIN NEOPLASM BENIGN [None]
  - GOITRE [None]
  - WEIGHT INCREASED [None]
  - HEPATIC ENZYME INCREASED [None]
  - DRUG INEFFECTIVE [None]
  - SKIN DISCOLOURATION [None]
  - ALOPECIA [None]
  - INFLUENZA LIKE ILLNESS [None]
